FAERS Safety Report 10068209 (Version 1)
Quarter: 2014Q2

REPORT INFORMATION
  Report Type: Spontaneous
  Country: US (occurrence: US)
  Receive Date: 20140409
  Receipt Date: 20140409
  Transmission Date: 20141212
  Serious: No
  Sender: FDA-Public Use
  Company Number: US-B.I. PHARMACEUTICALS,INC./RIDGEFIELD-2014-BI-13899BP

PATIENT
  Age: 92 Year
  Sex: Male

DRUGS (4)
  1. PRADAXA [Suspect]
     Indication: ATRIAL FIBRILLATION
     Dosage: 300 MG
     Route: 048
     Dates: start: 201401
  2. AMLODIPINE [Concomitant]
     Indication: HYPERTENSION
     Route: 050
  3. CRESTOR [Concomitant]
     Indication: BLOOD CHOLESTEROL INCREASED
     Dosage: 5 MG
     Route: 048
  4. DIGOXIN [Concomitant]
     Indication: CARDIAC DISORDER
     Dosage: 50 MCG
     Route: 048

REACTIONS (1)
  - Dizziness [Unknown]
